FAERS Safety Report 13689332 (Version 1)
Quarter: 2017Q2

REPORT INFORMATION
  Report Type: Spontaneous
  Country: US (occurrence: US)
  Receive Date: 20170625
  Receipt Date: 20170625
  Transmission Date: 20170830
  Serious: Yes (Disabling)
  Sender: FDA-Public Use
  Company Number: None

PATIENT
  Age: 50 Year
  Sex: Female
  Weight: 69.75 kg

DRUGS (3)
  1. FISH OIL [Concomitant]
     Active Substance: FISH OIL
  2. CLONAZAPAM 2 MG [Suspect]
     Active Substance: CLONAZEPAM
     Indication: PANIC ATTACK
     Dosage: ?          OTHER STRENGTH:MG;?
     Route: 048
  3. MULTIPLE VITAMIN [Concomitant]
     Active Substance: VITAMINS

REACTIONS (22)
  - Paraesthesia [None]
  - Depersonalisation/derealisation disorder [None]
  - Photophobia [None]
  - Musculoskeletal stiffness [None]
  - Dizziness [None]
  - Dysphagia [None]
  - Panic reaction [None]
  - Withdrawal syndrome [None]
  - Myalgia [None]
  - Vitreous floaters [None]
  - Tremor [None]
  - Dyskinesia [None]
  - Tongue discomfort [None]
  - Agoraphobia [None]
  - Insomnia [None]
  - Tinnitus [None]
  - Formication [None]
  - Derealisation [None]
  - Palpitations [None]
  - Anxiety [None]
  - Head discomfort [None]
  - Impaired driving ability [None]

NARRATIVE: CASE EVENT DATE: 20091030
